FAERS Safety Report 20477787 (Version 1)
Quarter: 2022Q1

REPORT INFORMATION
  Report Type: Report from Study
  Country: CO (occurrence: CO)
  Receive Date: 20220216
  Receipt Date: 20220216
  Transmission Date: 20220423
  Serious: Yes (Hospitalization)
  Sender: FDA-Public Use
  Company Number: CO-JNJFOC-20211021926

PATIENT
  Age: 49 Year
  Sex: Female
  Weight: 65 kg

DRUGS (7)
  1. INVEGA TRINZA [Suspect]
     Active Substance: PALIPERIDONE PALMITATE
     Indication: Schizophrenia
     Dosage: LATEST ADMINISTRATION: 19-AUG-2021
     Route: 030
     Dates: start: 20200818
  2. INVEGA TRINZA [Suspect]
     Active Substance: PALIPERIDONE PALMITATE
  3. INVEGA TRINZA [Suspect]
     Active Substance: PALIPERIDONE PALMITATE
  4. LORAZEPAM [Suspect]
     Active Substance: LORAZEPAM
  5. LOSARTAN [Concomitant]
     Active Substance: LOSARTAN
     Indication: Product used for unknown indication
  6. VALPROIC ACID [Concomitant]
     Active Substance: VALPROIC ACID
  7. CLOZAPINE [Concomitant]
     Active Substance: CLOZAPINE

REACTIONS (3)
  - Schizophrenia [Not Recovered/Not Resolved]
  - Urinary retention [Recovering/Resolving]
  - Eating disorder [Recovering/Resolving]

NARRATIVE: CASE EVENT DATE: 20211007
